FAERS Safety Report 12169246 (Version 1)
Quarter: 2016Q1

REPORT INFORMATION
  Report Type: Spontaneous
  Country: US (occurrence: US)
  Receive Date: 20160310
  Receipt Date: 20160310
  Transmission Date: 20160526
  Serious: Yes (Other)
  Sender: FDA-Public Use
  Company Number: US-ASTRAZENECA-2016SE26062

PATIENT
  Age: 69 Year
  Sex: Male

DRUGS (6)
  1. ATENOLOL. [Concomitant]
     Active Substance: ATENOLOL
     Dosage: 50MG 1 PILL DAILY
     Dates: start: 2006
  2. NIFEDIPINE. [Concomitant]
     Active Substance: NIFEDIPINE
     Indication: BLOOD PRESSURE ABNORMAL
     Dosage: 30MG ER TWO PILL DAILY
     Dates: start: 2014
  3. LISINOPRIL. [Concomitant]
     Active Substance: LISINOPRIL
     Indication: PERIPHERAL VASCULAR DISORDER
     Dates: start: 2006
  4. NEXIUM 24HR [Suspect]
     Active Substance: ESOMEPRAZOLE MAGNESIUM
     Indication: GASTROOESOPHAGEAL REFLUX DISEASE
     Route: 048
     Dates: start: 2015, end: 2015
  5. PREVACID [Suspect]
     Active Substance: LANSOPRAZOLE
     Indication: GASTROOESOPHAGEAL REFLUX DISEASE
     Route: 065
     Dates: start: 20150831
  6. PREVACID [Suspect]
     Active Substance: LANSOPRAZOLE
     Indication: GASTROOESOPHAGEAL REFLUX DISEASE
     Route: 065
     Dates: start: 201504, end: 201504

REACTIONS (15)
  - Arthralgia [Recovered/Resolved]
  - Photosensitivity reaction [Unknown]
  - Gastrointestinal pain [Not Recovered/Not Resolved]
  - Urticaria [Recovered/Resolved with Sequelae]
  - Contusion [Not Recovered/Not Resolved]
  - Back pain [Recovered/Resolved]
  - Weight decreased [Unknown]
  - Intestinal ulcer [Not Recovered/Not Resolved]
  - Tremor [Not Recovered/Not Resolved]
  - Flatulence [Unknown]
  - Vision blurred [Not Recovered/Not Resolved]
  - Infrequent bowel movements [Not Recovered/Not Resolved]
  - Hypersensitivity [Unknown]
  - Scar [Unknown]
  - Peripheral swelling [Not Recovered/Not Resolved]

NARRATIVE: CASE EVENT DATE: 2015
